FAERS Safety Report 8987210 (Version 1)
Quarter: 2012Q4

REPORT INFORMATION
  Report Type: 
  Country: DE (occurrence: DE)
  Receive Date: 20121226
  Receipt Date: 20121226
  Transmission Date: 20130627
  Serious: Yes (Hospitalization)
  Sender: FDA-Public Use
  Company Number: DE-SANOFI-AVENTIS-2012SA092571

PATIENT
  Age: 46 Year
  Sex: Female
  Weight: 82 kg

DRUGS (15)
  1. ARAVA [Suspect]
     Indication: RHEUMATOID ARTHRITIS
     Route: 065
     Dates: start: 20070313
  2. PREDNISOLONE [Suspect]
     Indication: RHEUMATOID ARTHRITIS
     Route: 042
     Dates: start: 20060601
  3. TOCILIZUMAB [Suspect]
     Indication: RHEUMATOID ARTHRITIS
     Dosage: dose: 8 mg/kg
     Route: 042
     Dates: start: 20081209
  4. TOCILIZUMAB [Suspect]
     Indication: RHEUMATOID ARTHRITIS
     Dosage: dose: 8 mg/kg
     Route: 042
     Dates: start: 20081209
  5. TOCILIZUMAB [Suspect]
     Indication: RHEUMATOID ARTHRITIS
     Dosage: dose: 8 mg/kg
     Route: 042
     Dates: start: 20081209
  6. TOCILIZUMAB [Suspect]
     Indication: RHEUMATOID ARTHRITIS
     Route: 042
     Dates: start: 20090305
  7. TOCILIZUMAB [Suspect]
     Indication: RHEUMATOID ARTHRITIS
     Route: 042
     Dates: start: 20090331
  8. TOCILIZUMAB [Suspect]
     Indication: RHEUMATOID ARTHRITIS
     Route: 042
     Dates: start: 20090430
  9. TOCILIZUMAB [Suspect]
     Indication: RHEUMATOID ARTHRITIS
     Route: 042
     Dates: start: 20090526
  10. IBUPROFEN [Concomitant]
     Dates: start: 20030326
  11. IBUPROFEN [Concomitant]
     Dates: start: 20090526
  12. IBUPROFEN [Concomitant]
     Dates: start: 20090615
  13. IBUPROFEN [Concomitant]
     Dates: start: 20090729
  14. IBUPROFEN [Concomitant]
     Dates: start: 20090808
  15. PANTOPRAZOLE [Concomitant]
     Indication: GASTRIC ULCER PROPHYLAXIS

REACTIONS (2)
  - Bursitis [Recovered/Resolved]
  - Postoperative wound infection [Recovered/Resolved]
